FAERS Safety Report 4394559-0 (Version None)
Quarter: 2004Q3

REPORT INFORMATION
  Report Type: 
  Country: None (occurrence: None)
  Receive Date: 20040707
  Receipt Date: 20040623
  Transmission Date: 20050211
  Serious: Yes (Hospitalization)
  Sender: FDA-Public Use
  Company Number: 04P-163-0265591-00

PATIENT
  Age: 27 Year
  Sex: Male
  Weight: 52.6173 kg

DRUGS (8)
  1. KALETRA [Suspect]
     Indication: HIV INFECTION
     Dosage: PER ORAL
     Route: 048
     Dates: start: 20040426, end: 20040614
  2. AZITHROMYCIN [Concomitant]
  3. ETHAMBUTOL HCL [Concomitant]
  4. CLOTRIMAZOLE [Concomitant]
  5. ATOVAQUONE [Concomitant]
  6. NSAID'S [Concomitant]
  7. STAVUDINE [Concomitant]
  8. TENOFOVIR [Concomitant]

REACTIONS (7)
  - BLOOD CREATININE INCREASED [None]
  - CONFUSIONAL STATE [None]
  - DIARRHOEA [None]
  - MENTAL STATUS CHANGES [None]
  - MYCOBACTERIUM AVIUM COMPLEX INFECTION [None]
  - PAIN [None]
  - PROGRESSIVE MULTIFOCAL LEUKOENCEPHALOPATHY [None]
